FAERS Safety Report 14570638 (Version 1)
Quarter: 2018Q1

REPORT INFORMATION
  Report Type: Spontaneous
  Country: FR (occurrence: FR)
  Receive Date: 20180226
  Receipt Date: 20180226
  Transmission Date: 20180509
  Serious: Yes (Life-Threatening, Other)
  Sender: FDA-Public Use
  Company Number: FR-BRISTOL-MYERS SQUIBB COMPANY-BMS-2018-014019

PATIENT
  Age: 79 Year
  Sex: Female
  Weight: 116 kg

DRUGS (1)
  1. COUMADINE [Suspect]
     Active Substance: WARFARIN SODIUM
     Indication: COAGULOPATHY
     Route: 048
     Dates: end: 20171001

REACTIONS (3)
  - Cerebellar haematoma [Recovered/Resolved]
  - Subarachnoid haemorrhage [Recovered/Resolved with Sequelae]
  - International normalised ratio increased [Recovered/Resolved]

NARRATIVE: CASE EVENT DATE: 20171101
